FAERS Safety Report 24940812 (Version 1)
Quarter: 2025Q1

REPORT INFORMATION
  Report Type: Spontaneous
  Country: IT (occurrence: IT)
  Receive Date: 20250207
  Receipt Date: 20250207
  Transmission Date: 20250409
  Serious: Yes (Hospitalization)
  Sender: BAUSCH AND LOMB
  Company Number: IT-JNJFOC-20250162017

PATIENT
  Age: 72 Year
  Sex: Female

DRUGS (13)
  1. DEXAMETHASONE [Suspect]
     Active Substance: DEXAMETHASONE
     Indication: Plasma cell myeloma
     Route: 065
     Dates: start: 20211215, end: 20221103
  2. DARZALEX [Suspect]
     Active Substance: DARATUMUMAB
     Indication: Plasma cell myeloma
     Route: 065
     Dates: start: 20211215, end: 20221102
  3. LENALIDOMIDE [Suspect]
     Active Substance: LENALIDOMIDE
     Indication: Plasma cell myeloma
     Route: 065
     Dates: start: 20211215, end: 20221101
  4. OMEPRAZOLE [Concomitant]
     Active Substance: OMEPRAZOLE
     Indication: Gastrointestinal disorder therapy
     Dates: start: 20211215
  5. ACYCLOVIR [Concomitant]
     Active Substance: ACYCLOVIR
     Indication: Herpes zoster
     Dates: start: 20211215
  6. BACTRIM [Concomitant]
     Active Substance: SULFAMETHOXAZOLE\TRIMETHOPRIM
     Indication: Antibiotic prophylaxis
     Dates: start: 20211215
  7. LASIX [Concomitant]
     Active Substance: FUROSEMIDE
     Indication: Renal failure
     Dates: start: 19000101
  8. DAPAGLIFLOZIN [Concomitant]
     Active Substance: DAPAGLIFLOZIN
     Indication: Diabetes mellitus
     Dates: start: 19000101
  9. IVABRADINA ACCORD [Concomitant]
     Indication: Cardiac disorder
     Dates: start: 19000101
  10. CANRENOATE POTASSIUM [Concomitant]
     Active Substance: CANRENOATE POTASSIUM
     Indication: Renal failure
     Dates: start: 19000101
  11. LYRICA [Concomitant]
     Active Substance: PREGABALIN
     Indication: Pain
     Dates: start: 19000101
  12. SIDEREMIL [Concomitant]
     Indication: Anaemia
     Dates: start: 19000101
  13. NEURIDASE [Concomitant]
     Indication: Pain
     Dates: start: 19000101

REACTIONS (2)
  - Haematochezia [Unknown]
  - Anaemia [Recovered/Resolved]

NARRATIVE: CASE EVENT DATE: 20221122
